FAERS Safety Report 24857573 (Version 1)
Quarter: 2025Q1

REPORT INFORMATION
  Report Type: Spontaneous
  Country: DE (occurrence: DE)
  Receive Date: 20250117
  Receipt Date: 20250117
  Transmission Date: 20250408
  Serious: Yes (Other)
  Sender: MERCK
  Company Number: DE-MFDS-2021000061-2501DEU004376

PATIENT
  Sex: Female

DRUGS (1)
  1. JANUVIA [Suspect]
     Active Substance: SITAGLIPTIN PHOSPHATE
     Route: 048
     Dates: start: 2021

REACTIONS (2)
  - Pancreatic carcinoma [Unknown]
  - Adverse event [Unknown]

NARRATIVE: CASE EVENT DATE: 20210101
